FAERS Safety Report 16549021 (Version 3)
Quarter: 2020Q2

REPORT INFORMATION
  Report Type: Spontaneous
  Country: US (occurrence: US)
  Receive Date: 20190709
  Receipt Date: 20200507
  Transmission Date: 20200713
  Serious: No
  Sender: FDA-Public Use
  Company Number: US-EMD SERONO-9102275

PATIENT
  Sex: Male

DRUGS (2)
  1. SEROSTIM [Suspect]
     Active Substance: SOMATROPIN
     Indication: CACHEXIA
  2. SEROSTIM [Suspect]
     Active Substance: SOMATROPIN
     Indication: GROWTH HORMONE DEFICIENCY
     Route: 058

REACTIONS (8)
  - Sexual dysfunction [Unknown]
  - Body fat disorder [Unknown]
  - Burning sensation [Unknown]
  - Nose deformity [Unknown]
  - Skin exfoliation [Unknown]
  - Adverse drug reaction [Unknown]
  - Erythema [Unknown]
  - Eye disorder [Unknown]
